FAERS Safety Report 6998835-4 (Version None)
Quarter: 2010Q3

REPORT INFORMATION
  Report Type: 
  Country: None (occurrence: None)
  Receive Date: 20100920
  Receipt Date: 20100517
  Transmission Date: 20110219
  Serious: Yes (Hospitalization)
  Sender: FDA-Public Use
  Company Number: US-ASTRAZENECA-2010SE24682

PATIENT
  Age: 20371 Day
  Sex: Female

DRUGS (6)
  1. SEROQUEL [Suspect]
     Dosage: 200-400 MG DAILY
     Route: 048
     Dates: start: 20031217
  2. PAXIL CR [Concomitant]
     Dosage: 25-30 MG
     Dates: start: 20031201
  3. RISPERDAL [Concomitant]
     Dates: start: 20040101
  4. BENZTROPINE MES [Concomitant]
     Dates: start: 20040101
  5. DEPAKOTE ER [Concomitant]
     Dates: start: 20051001
  6. KLONOPIN [Concomitant]
     Dates: start: 20051001

REACTIONS (1)
  - CHEST PAIN [None]
